FAERS Safety Report 7429413-0 (Version None)
Quarter: 2011Q2

REPORT INFORMATION
  Report Type: 
  Country: None (occurrence: None)
  Receive Date: 20110419
  Receipt Date: 20110419
  Transmission Date: 20111010
  Serious: Yes (Death)
  Sender: FDA-Public Use
  Company Number: None

PATIENT
  Sex: Male
  Weight: 136 kg

DRUGS (2)
  1. PRADAXA [Suspect]
     Indication: ATRIAL FIBRILLATION
     Dosage: 150MG EVERY 12 HOURS PO
     Route: 048
     Dates: start: 20110318, end: 20110415
  2. PRADAXA [Suspect]
     Indication: KNEE ARTHROPLASTY
     Dosage: 150MG EVERY 12 HOURS PO
     Route: 048
     Dates: start: 20110318, end: 20110415

REACTIONS (1)
  - GASTROINTESTINAL HAEMORRHAGE [None]
